FAERS Safety Report 6383996-0 (Version None)
Quarter: 2009Q3

REPORT INFORMATION
  Report Type: 
  Country: None (occurrence: None)
  Receive Date: 20090928
  Receipt Date: 20090917
  Transmission Date: 20100115
  Serious: Yes (Other)
  Sender: FDA-Public Use
  Company Number: 2009-02043

PATIENT
  Sex: Male

DRUGS (1)
  1. VELCADE [Suspect]
     Indication: MULTIPLE MYELOMA
     Dosage: INTRAVENOUS
     Route: 042

REACTIONS (7)
  - CARDIOPULMONARY FAILURE [None]
  - LUNG ABSCESS [None]
  - MALIGNANT URINARY TRACT NEOPLASM [None]
  - PNEUMONIA [None]
  - PSEUDOMEMBRANOUS COLITIS [None]
  - PULMONARY FIBROSIS [None]
  - URINARY TRACT CARCINOMA IN SITU [None]
